FAERS Safety Report 4523671-8 (Version None)
Quarter: 2004Q4

REPORT INFORMATION
  Report Type: 
  Country: None (occurrence: None)
  Receive Date: 20041208
  Receipt Date: 20041201
  Transmission Date: 20050328
  Serious: Yes (Death)
  Sender: FDA-Public Use
  Company Number: 2004UW24644

PATIENT
  Age: 28 Year
  Sex: Male

DRUGS (3)
  1. SEROQUEL [Suspect]
     Dosage: 400 MG DAILY ORAL
     Route: 048
  2. PROZAC [Concomitant]
  3. COCAINE [Concomitant]

REACTIONS (1)
  - MULTIPLE DRUG OVERDOSE [None]
